FAERS Safety Report 6157055-6 (Version None)
Quarter: 2009Q2

REPORT INFORMATION
  Report Type: 
  Country: None (occurrence: None)
  Receive Date: 20090416
  Receipt Date: 20090403
  Transmission Date: 20091009
  Serious: Yes (Hospitalization)
  Sender: FDA-Public Use
  Company Number: GB-AVENTIS-200913761GDDC

PATIENT
  Age: 67 Year
  Sex: Female

DRUGS (7)
  1. EUGLUCON [Suspect]
     Indication: DIABETES MELLITUS
  2. BASEN [Suspect]
     Indication: DIABETES MELLITUS
     Route: 048
  3. NOVORAPID [Suspect]
     Indication: DIABETES MELLITUS
     Route: 058
  4. CARDENALIN [Concomitant]
  5. SELOKEN                            /00376902/ [Concomitant]
  6. NORVASC [Concomitant]
  7. BLOPRESS [Concomitant]

REACTIONS (2)
  - ALTERED STATE OF CONSCIOUSNESS [None]
  - PNEUMONIA ASPIRATION [None]
